FAERS Safety Report 13210100 (Version 6)
Quarter: 2017Q2

REPORT INFORMATION
  Report Type: Report from Study
  Country: US (occurrence: US)
  Receive Date: 20170210
  Receipt Date: 20170619
  Transmission Date: 20170830
  Serious: Yes (Other)
  Sender: FDA-Public Use
  Company Number: US-JNJFOC-20170208832

PATIENT
  Sex: Female

DRUGS (16)
  1. IMBRUVICA [Suspect]
     Active Substance: IBRUTINIB
     Indication: CHRONIC LYMPHOCYTIC LEUKAEMIA
     Route: 048
     Dates: start: 20161117
  2. HYDROCHLOROTHIAZIDE. [Concomitant]
     Active Substance: HYDROCHLOROTHIAZIDE
  3. ISOSORBIDE. [Concomitant]
     Active Substance: ISOSORBIDE
  4. LOSARTAN. [Concomitant]
     Active Substance: LOSARTAN
  5. METOPROLOL. [Concomitant]
     Active Substance: METOPROLOL
  6. NITROGLYCERINE [Concomitant]
     Active Substance: NITROGLYCERIN
  7. IMBRUVICA [Suspect]
     Active Substance: IBRUTINIB
     Indication: CHRONIC LYMPHOCYTIC LEUKAEMIA
     Route: 048
     Dates: start: 20161119
  8. ASPIRIN. [Concomitant]
     Active Substance: ASPIRIN
  9. ZIOPTAN [Concomitant]
     Active Substance: TAFLUPROST
  10. ATORVASTATIN [Concomitant]
     Active Substance: ATORVASTATIN
  11. CHLORAMBUCIL [Concomitant]
     Active Substance: CHLORAMBUCIL
  12. LATANOPROST. [Concomitant]
     Active Substance: LATANOPROST
  13. FLUTICASONE PROPIONATE. [Concomitant]
     Active Substance: FLUTICASONE PROPIONATE
  14. AMLODIPINE [Concomitant]
     Active Substance: AMLODIPINE BESYLATE
  15. CLOPIDOGREL BISULFATE. [Concomitant]
     Active Substance: CLOPIDOGREL BISULFATE
  16. DORZOLAMIDE [Concomitant]
     Active Substance: DORZOLAMIDE

REACTIONS (2)
  - Aortic stenosis [Unknown]
  - Cardiac failure congestive [Unknown]
